FAERS Safety Report 13854391 (Version 1)
Quarter: 2017Q3

REPORT INFORMATION
  Report Type: Spontaneous
  Country: US (occurrence: US)
  Receive Date: 20170810
  Receipt Date: 20170810
  Transmission Date: 20171127
  Serious: No
  Sender: FDA-Public Use
  Company Number: US-GLAXOSMITHKLINE-US2017121906

PATIENT
  Sex: Female

DRUGS (1)
  1. VOLTAREN [Suspect]
     Active Substance: DICLOFENAC SODIUM
     Indication: BACK PAIN
     Dosage: A PORTION
     Dates: start: 201707

REACTIONS (3)
  - Product use in unapproved indication [Unknown]
  - Incorrect dosage administered [Unknown]
  - Drug administered at inappropriate site [Unknown]
